FAERS Safety Report 9948868 (Version 2)
Quarter: 2014Q3

REPORT INFORMATION
  Report Type: Spontaneous
  Country: IT (occurrence: IT)
  Receive Date: 20140304
  Receipt Date: 20140715
  Transmission Date: 20150326
  Serious: Yes (Hospitalization)
  Sender: FDA-Public Use
  Company Number: IT-SHIRE-IT201400048

PATIENT
  Age: 19 Year
  Sex: Male

DRUGS (4)
  1. 476 (MESALAZINE/MESALAMINE) [Suspect]
     Active Substance: MESALAMINE
     Indication: COLITIS ULCERATIVE
     Dosage: 2400 MG, 1X/DAY:QD
     Route: 048
     Dates: start: 20131221, end: 20140108
  2. 476 (MESALAZINE/MESALAMINE) [Suspect]
     Active Substance: MESALAMINE
     Dosage: 2400 MG, 2X/DAY:BID
     Route: 048
     Dates: start: 20140109, end: 20140125
  3. MESALAZINE [Suspect]
     Active Substance: MESALAMINE
     Indication: COLITIS ULCERATIVE
     Dosage: 500 MG, 1X/DAY:QD
     Route: 054
     Dates: start: 20140121, end: 20140125
  4. 476 (MESALAZINE/MESALAMINE) [Suspect]
     Active Substance: MESALAMINE
     Dosage: 4800 MG, 1X/DAY:QD
     Route: 048
     Dates: start: 20140208, end: 20140208

REACTIONS (3)
  - Influenza [Recovered/Resolved]
  - Pancreatitis [Recovered/Resolved]
  - Colitis ulcerative [Recovered/Resolved]

NARRATIVE: CASE EVENT DATE: 201401
